FAERS Safety Report 7591880-X (Version None)
Quarter: 2011Q3

REPORT INFORMATION
  Report Type: 
  Country: None (occurrence: None)
  Receive Date: 20110706
  Receipt Date: 20110617
  Transmission Date: 20111222
  Serious: Yes (Other)
  Sender: FDA-Public Use
  Company Number: US-BAYER-2010-006813

PATIENT
  Sex: Female
  Weight: 84 kg

DRUGS (4)
  1. LASIX [Concomitant]
     Dosage: 20 MG, UNK
  2. NAPROSYN [Concomitant]
     Dosage: 500 MG, UNK
  3. IBUPROFEN [Concomitant]
  4. YAZ [Suspect]
     Indication: CONTRACEPTION
     Dosage: UNK
     Dates: start: 20081201, end: 20091201

REACTIONS (9)
  - FEAR OF DEATH [None]
  - MENORRHAGIA [None]
  - EMOTIONAL DISTRESS [None]
  - NERVOUSNESS [None]
  - CHOLECYSTITIS INFECTIVE [None]
  - INJURY [None]
  - ABDOMINAL PAIN UPPER [None]
  - PAIN [None]
  - DEPRESSION [None]
